FAERS Safety Report 23566022 (Version 1)
Quarter: 2024Q1

REPORT INFORMATION
  Report Type: Spontaneous
  Country: US (occurrence: US)
  Receive Date: 20240226
  Receipt Date: 20240226
  Transmission Date: 20240410
  Serious: No
  Sender: FDA-Public Use
  Company Number: ENDG23-06510

PATIENT

DRUGS (1)
  1. COLCHICINE [Suspect]
     Active Substance: COLCHICINE
     Indication: Pericarditis
     Dosage: 1.2 MILLIGRAM, BID (TWO DOSAGE FORM X 0.6 MG DAILY)
     Route: 065
     Dates: start: 20220923, end: 20220924

REACTIONS (4)
  - Diarrhoea [Unknown]
  - Nausea [Unknown]
  - Drug effective for unapproved indication [Unknown]
  - Off label use [Recovered/Resolved]

NARRATIVE: CASE EVENT DATE: 20220923
